FAERS Safety Report 17057764 (Version 1)
Quarter: 2019Q4

REPORT INFORMATION
  Report Type: Spontaneous
  Country: CH (occurrence: CH)
  Receive Date: 20191121
  Receipt Date: 20191121
  Transmission Date: 20200122
  Serious: Yes (Other)
  Sender: FDA-Public Use
  Company Number: CH-PFIZER INC-2019490672

PATIENT
  Age: 62 Year
  Sex: Female

DRUGS (5)
  1. TAXOL [Concomitant]
     Active Substance: PACLITAXEL
     Indication: CHEMOTHERAPY
     Dosage: UNK
     Dates: start: 2019, end: 2019
  2. XELODA [Concomitant]
     Active Substance: CAPECITABINE
     Dosage: UNK, CYCLIC
     Dates: start: 2019
  3. FULVESTRANT. [Suspect]
     Active Substance: FULVESTRANT
     Indication: BREAST CANCER RECURRENT
     Dosage: UNK
     Dates: start: 201809, end: 201906
  4. PALBOCICLIB [Suspect]
     Active Substance: PALBOCICLIB
     Indication: BREAST CANCER RECURRENT
     Dosage: UNK
     Dates: start: 201809, end: 201906
  5. CARBOPLATIN. [Concomitant]
     Active Substance: CARBOPLATIN
     Indication: CHEMOTHERAPY
     Dosage: UNK
     Dates: start: 2019, end: 2019

REACTIONS (2)
  - Second primary malignancy [Unknown]
  - Breast cancer [Unknown]

NARRATIVE: CASE EVENT DATE: 2019
